FAERS Safety Report 14830817 (Version 1)
Quarter: 2018Q2

REPORT INFORMATION
  Report Type: Spontaneous
  Country: US (occurrence: US)
  Receive Date: 20180430
  Receipt Date: 20180430
  Transmission Date: 20180711
  Serious: No
  Sender: FDA-Public Use
  Company Number: US-SA-2018SA109776

PATIENT
  Age: 65 Year
  Sex: Male

DRUGS (2)
  1. ALIROCUMAB PREFILLED PEN [Suspect]
     Active Substance: ALIROCUMAB
     Indication: TYPE IIA HYPERLIPIDAEMIA
     Dates: start: 20171201, end: 20180331
  2. PRALUENT [Suspect]
     Active Substance: ALIROCUMAB
     Indication: TYPE IIA HYPERLIPIDAEMIA
     Route: 058
     Dates: start: 20171201, end: 20180331

REACTIONS (4)
  - Erythema [Unknown]
  - Skin reaction [Unknown]
  - Pruritus [Unknown]
  - Inflammation [Unknown]

NARRATIVE: CASE EVENT DATE: 20180301
